FAERS Safety Report 6428047-4 (Version None)
Quarter: 2009Q4

REPORT INFORMATION
  Report Type: 
  Country: None (occurrence: None)
  Receive Date: 20091102
  Receipt Date: 20091026
  Transmission Date: 20100525
  Serious: Yes (Other)
  Sender: FDA-Public Use
  Company Number: 2009SP030435

PATIENT
  Age: 50 Year
  Sex: Male

DRUGS (5)
  1. REBETOL [Suspect]
     Indication: HEPATITIS CHRONIC ACTIVE
     Dosage: 200 MG;QD;PO, 400 MG;QD;PO
     Route: 048
     Dates: start: 20070101, end: 20071101
  2. REBETOL [Suspect]
     Indication: HEPATITIS CHRONIC ACTIVE
     Dosage: 200 MG;QD;PO, 400 MG;QD;PO
     Route: 048
     Dates: start: 20071101
  3. INTRON A [Suspect]
     Indication: HEPATITIS CHRONIC ACTIVE
     Dosage: 1.5 MIU;TIW;IM, 3 MIU;TIW;IM
     Route: 030
     Dates: start: 20070101, end: 20071101
  4. INTRON A [Suspect]
     Indication: HEPATITIS CHRONIC ACTIVE
     Dosage: 1.5 MIU;TIW;IM, 3 MIU;TIW;IM
     Route: 030
     Dates: start: 20071101
  5. PROGRAF [Concomitant]

REACTIONS (2)
  - PULMONARY TUBERCULOSIS [None]
  - TUBERCULOSIS OF INTRATHORACIC LYMPH NODES [None]
